FAERS Safety Report 9881778 (Version 1)
Quarter: 2014Q1

REPORT INFORMATION
  Report Type: Spontaneous
  Country: US (occurrence: US)
  Receive Date: 20140207
  Receipt Date: 20140207
  Transmission Date: 20141002
  Serious: Yes (Other)
  Sender: FDA-Public Use
  Company Number: US-ACTAVIS-2014-01728

PATIENT
  Sex: Female

DRUGS (1)
  1. OXYTROL (WATSON LABORATORIES) [Suspect]
     Indication: PRODUCT USED FOR UNKNOWN INDICATION
     Dosage: 2.9 MG, UNK
     Route: 065
     Dates: start: 2003

REACTIONS (1)
  - Glaucoma [Unknown]
